FAERS Safety Report 5063955-0 (Version None)
Quarter: 2006Q3

REPORT INFORMATION
  Report Type: 
  Country: None (occurrence: None)
  Receive Date: 20060727
  Receipt Date: 20060630
  Transmission Date: 20061208
  Serious: Yes (Hospitalization)
  Sender: FDA-Public Use
  Company Number: JP-MERCK-0607USA00329

PATIENT
  Age: 93 Year
  Sex: Female
  Weight: 38 kg

DRUGS (2)
  1. PRIMAXIN [Suspect]
     Indication: PNEUMONIA
     Route: 042
     Dates: start: 20060619, end: 20060630
  2. AMINOPHYLLINE [Suspect]
     Indication: ASTHMA
     Route: 042
     Dates: start: 20060622, end: 20060630

REACTIONS (3)
  - CONVULSION [None]
  - DEPRESSED LEVEL OF CONSCIOUSNESS [None]
  - DRUG LEVEL DECREASED [None]
